FAERS Safety Report 12876020 (Version 1)
Quarter: 2016Q4

REPORT INFORMATION
  Report Type: Spontaneous
  Country: US (occurrence: US)
  Receive Date: 20161024
  Receipt Date: 20161024
  Transmission Date: 20170207
  Serious: No
  Sender: FDA-Public Use
  Company Number: US-JAZZ-2016-US-015311

PATIENT
  Sex: Male

DRUGS (13)
  1. XYREM [Suspect]
     Active Substance: SODIUM OXYBATE
     Indication: NARCOLEPSY
     Dosage: 2.25 G, BID
     Route: 048
     Dates: start: 201602, end: 2016
  2. XYREM [Suspect]
     Active Substance: SODIUM OXYBATE
     Indication: CATAPLEXY
     Dosage: DOSE ADJUSTMENTS
     Route: 048
     Dates: start: 2016, end: 201604
  3. ADDERALL [Concomitant]
     Active Substance: AMPHETAMINE ASPARTATE\AMPHETAMINE SULFATE\DEXTROAMPHETAMINE SACCHARATE\DEXTROAMPHETAMINE SULFATE
  4. IPRATROPIUM [Concomitant]
     Active Substance: IPRATROPIUM
  5. TYLENOL [Concomitant]
     Active Substance: ACETAMINOPHEN
  6. METOPROLOL TARTRATE. [Concomitant]
     Active Substance: METOPROLOL TARTRATE
  7. RANITIDINE. [Concomitant]
     Active Substance: RANITIDINE
  8. NUVIGIL [Concomitant]
     Active Substance: ARMODAFINIL
  9. XYREM [Suspect]
     Active Substance: SODIUM OXYBATE
     Dosage: 4.5 G, BID
     Route: 048
     Dates: start: 201604
  10. GABAPENTIN. [Suspect]
     Active Substance: GABAPENTIN
     Indication: NEURALGIA
  11. OMEPRAZOLE. [Concomitant]
     Active Substance: OMEPRAZOLE
  12. PROVIGIL [Concomitant]
     Active Substance: MODAFINIL
  13. ALPRAZOLAM. [Concomitant]
     Active Substance: ALPRAZOLAM

REACTIONS (2)
  - Dizziness [Not Recovered/Not Resolved]
  - Neuralgia [Unknown]

NARRATIVE: CASE EVENT DATE: 2016
